FAERS Safety Report 9749887 (Version 2)
Quarter: 2013Q4

REPORT INFORMATION
  Report Type: Spontaneous
  Country: US (occurrence: US)
  Receive Date: 20131212
  Receipt Date: 20131220
  Transmission Date: 20140711
  Serious: Yes (Other)
  Sender: FDA-Public Use
  Company Number: US-PFIZER INC-2013355342

PATIENT
  Age: 56 Year
  Sex: Male
  Weight: 145 kg

DRUGS (4)
  1. NEURONTIN [Suspect]
     Indication: NEUROPATHY PERIPHERAL
     Dosage: 1200MG IN MORNING AND 1800MG AT NIGHT
     Dates: start: 2013
  2. LYRICA [Suspect]
     Indication: FIBROMYALGIA
     Dosage: 300 MG, 1X/DAY
     Dates: start: 2013
  3. LYRICA [Suspect]
     Indication: NEUROPATHY PERIPHERAL
     Dosage: 100 MG, 1X/DAY
     Dates: start: 201312
  4. LISINOPRIL [Concomitant]
     Indication: HYPERTENSION
     Dosage: 60 MG, 1X/DAY

REACTIONS (3)
  - Renal failure [Unknown]
  - Renal disorder [Unknown]
  - Blood urine present [Unknown]
